FAERS Safety Report 7960153-5 (Version None)
Quarter: 2011Q4

REPORT INFORMATION
  Report Type: 
  Country: None (occurrence: None)
  Receive Date: 20111206
  Receipt Date: 20111130
  Transmission Date: 20120403
  Serious: Yes (Hospitalization)
  Sender: FDA-Public Use
  Company Number: PHHY2011VE105864

PATIENT
  Sex: Female

DRUGS (6)
  1. PROTELOS (STRONTIUM RANELATE) [Concomitant]
     Indication: OSTEOPOROSIS
  2. AMIODARONE HCL [Concomitant]
  3. ZOLEDRONOC ACID [Suspect]
     Indication: OSTEOPOROSIS
     Dosage: 5 MG, ONCE A YEAR
     Route: 042
     Dates: start: 20090801
  4. ZOLEDRONOC ACID [Suspect]
     Dosage: 5 MG, ONCE A YEAR
     Route: 042
     Dates: start: 20110201
  5. CALCIUM CARBONATE [Concomitant]
     Indication: OSTEOPOROSIS
  6. ZOLEDRONOC ACID [Suspect]
     Dosage: 5 MG, ONCE A YEAR
     Route: 042
     Dates: start: 20100801

REACTIONS (3)
  - OVERDOSE [None]
  - INAPPROPRIATE SCHEDULE OF DRUG ADMINISTRATION [None]
  - HERNIAL EVENTRATION [None]
